FAERS Safety Report 20844044 (Version 1)
Quarter: 2022Q2

REPORT INFORMATION
  Report Type: Spontaneous
  Country: US (occurrence: None)
  Receive Date: 20220517
  Receipt Date: 20220517
  Transmission Date: 20220720
  Serious: Yes (Death, Hospitalization)
  Sender: FDA-Public Use
  Company Number: None

PATIENT
  Sex: Female

DRUGS (5)
  1. XOLAIR [Suspect]
     Active Substance: OMALIZUMAB
     Indication: Urticaria
     Dosage: OTHER FREQUENCY : EVERY 28 DAYS;?
     Route: 058
     Dates: start: 20210521
  2. XOLAIR [Suspect]
     Active Substance: OMALIZUMAB
     Dosage: OTHER FREQUENCY : EVERY 28 DAYS;?
     Route: 058
  3. HUMIRA CF PEN [Concomitant]
  4. HUMRIA PEN INJ [Concomitant]
  5. HUMIRA [Concomitant]
     Active Substance: ADALIMUMAB

REACTIONS (2)
  - Lesion excision [None]
  - Infection [None]
